FAERS Safety Report 7929006-2 (Version None)
Quarter: 2011Q4

REPORT INFORMATION
  Report Type: 
  Country: None (occurrence: None)
  Receive Date: 20111118
  Receipt Date: 20111107
  Transmission Date: 20120403
  Serious: Yes (Other)
  Sender: FDA-Public Use
  Company Number: US-AMGEN-USASP2011058254

PATIENT
  Sex: Female

DRUGS (2)
  1. ENBREL [Suspect]
     Indication: RHEUMATOID ARTHRITIS
     Dosage: 50 MG, QWK
     Dates: start: 20100601, end: 20100701
  2. METHOTREXATE [Concomitant]
     Dosage: 5 MG, QWK
     Dates: start: 19940101

REACTIONS (4)
  - VULVAL CANCER STAGE 0 [None]
  - RHEUMATOID ARTHRITIS [None]
  - JOINT DISLOCATION [None]
  - HAND DEFORMITY [None]
